FAERS Safety Report 24351400 (Version 1)
Quarter: 2024Q3

REPORT INFORMATION
  Report Type: Report from Study
  Country: AT (occurrence: AT)
  Receive Date: 20240923
  Receipt Date: 20240923
  Transmission Date: 20241017
  Serious: No
  Sender: ROCHE
  Company Number: AT-ROCHE-2487316

PATIENT
  Age: 64 Year
  Sex: Female
  Weight: 80.4 kg

DRUGS (81)
  1. HERCEPTIN [Suspect]
     Active Substance: TRASTUZUMAB
     Indication: HER2 positive breast cancer
     Route: 042
     Dates: start: 20170224, end: 20170224
  2. HERCEPTIN [Suspect]
     Active Substance: TRASTUZUMAB
     Route: 042
     Dates: start: 20200422, end: 20200615
  3. HERCEPTIN [Suspect]
     Active Substance: TRASTUZUMAB
     Route: 042
     Dates: start: 20201230, end: 20210210
  4. HERCEPTIN [Suspect]
     Active Substance: TRASTUZUMAB
     Route: 042
     Dates: start: 20210317, end: 20210428
  5. HERCEPTIN [Suspect]
     Active Substance: TRASTUZUMAB
     Route: 042
     Dates: start: 20170317, end: 20170317
  6. HERCEPTIN [Suspect]
     Active Substance: TRASTUZUMAB
     Route: 042
     Dates: start: 20170410, end: 20170427
  7. HERCEPTIN [Suspect]
     Active Substance: TRASTUZUMAB
     Route: 042
     Dates: start: 20170519, end: 20170519
  8. HERCEPTIN [Suspect]
     Active Substance: TRASTUZUMAB
     Route: 042
     Dates: start: 20170609, end: 20170630
  9. HERCEPTIN [Suspect]
     Active Substance: TRASTUZUMAB
     Route: 042
     Dates: start: 20170720, end: 20170720
  10. HERCEPTIN [Suspect]
     Active Substance: TRASTUZUMAB
     Route: 042
     Dates: start: 20170810, end: 20190213
  11. KADCYLA [Suspect]
     Active Substance: ADO-TRASTUZUMAB EMTANSINE
     Indication: HER2 positive breast cancer
     Route: 042
     Dates: start: 20190306, end: 20190909
  12. PERJETA [Suspect]
     Active Substance: PERTUZUMAB
     Indication: HER2 positive breast cancer
     Route: 042
     Dates: start: 20170224, end: 20170224
  13. PERJETA [Suspect]
     Active Substance: PERTUZUMAB
     Dosage: FREQUENCY VARIED OVER TIME(FROM 3 WEEKS TO 24DAYS)
     Route: 042
     Dates: start: 20170317, end: 20190213
  14. PERJETA [Suspect]
     Active Substance: PERTUZUMAB
     Route: 042
     Dates: start: 20210317, end: 20210428
  15. PERJETA [Suspect]
     Active Substance: PERTUZUMAB
     Route: 042
     Dates: start: 20200422, end: 20200615
  16. TAXOTERE [Suspect]
     Active Substance: DOCETAXEL
     Indication: HER2 positive breast cancer
     Route: 042
     Dates: start: 20170224, end: 20170317
  17. TAXOTERE [Suspect]
     Active Substance: DOCETAXEL
     Route: 042
     Dates: start: 20170410, end: 20170427
  18. TAXOTERE [Suspect]
     Active Substance: DOCETAXEL
     Route: 042
     Dates: start: 20170609, end: 20170630
  19. TAXOTERE [Suspect]
     Active Substance: DOCETAXEL
     Route: 042
     Dates: start: 20210317, end: 20210428
  20. TAXOTERE [Suspect]
     Active Substance: DOCETAXEL
     Route: 042
     Dates: start: 20170519, end: 20170519
  21. FASLODEX [Suspect]
     Active Substance: FULVESTRANT
     Indication: HER2 positive breast cancer
     Route: 058
     Dates: start: 20171002, end: 20171115
  22. FASLODEX [Suspect]
     Active Substance: FULVESTRANT
     Route: 058
     Dates: start: 20171116, end: 20191001
  23. XGEVA [Concomitant]
     Active Substance: DENOSUMAB
     Dosage: ONGOING = CHECKED
     Dates: start: 20170202, end: 20210521
  24. CALCIUM CARBONATE\CHOLECALCIFEROL [Concomitant]
     Active Substance: CALCIUM CARBONATE\CHOLECALCIFEROL
     Dosage: ONGOING = CHECKED
     Dates: start: 20170203, end: 20210612
  25. EDOXABAN TOSYLATE [Concomitant]
     Active Substance: EDOXABAN TOSYLATE
     Dosage: ONGOING = CHECKED
     Dates: start: 20181228, end: 20191015
  26. PREGABALIN [Concomitant]
     Active Substance: PREGABALIN
     Dosage: ONGOING = CHECKED
     Dates: start: 20180124, end: 20190820
  27. MOTRIM (AUSTRIA) [Concomitant]
     Dosage: ONGOING = NOT CHECKED
     Dates: start: 20190619, end: 20190623
  28. TRAZODONE HYDROCHLORIDE [Concomitant]
     Active Substance: TRAZODONE HYDROCHLORIDE
     Indication: Pain in extremity
     Dosage: ONGOING = NOT CHECKED
     Dates: start: 20190731, end: 20190915
  29. EUTHYROX [Concomitant]
     Active Substance: LEVOTHYROXINE SODIUM
     Dosage: ONGOING = CHECKED
     Dates: start: 20170303, end: 20210615
  30. OLEOVIT [COLECALCIFEROL-CHOLESTERIN] [Concomitant]
     Dosage: ONGOING = CHECKED
     Dates: start: 20170329, end: 20210615
  31. FUROSEMIDE [Concomitant]
     Active Substance: FUROSEMIDE
  32. PANTOPRAZOLE SODIUM [Concomitant]
     Active Substance: PANTOPRAZOLE SODIUM
  33. POLYETHYLENE GLYCOL 3350\POTASSIUM CHLORIDE\SODIUM BICARBONATE\SODIUM [Concomitant]
     Active Substance: POLYETHYLENE GLYCOL 3350\POTASSIUM CHLORIDE\SODIUM BICARBONATE\SODIUM CHLORIDE
  34. NOVALGIN (AUSTRIA) [Concomitant]
  35. LASIX [Concomitant]
     Active Substance: FUROSEMIDE
  36. KCL [Concomitant]
     Active Substance: POTASSIUM CHLORIDE
  37. ONDANSETRON HYDROCHLORIDE [Concomitant]
     Active Substance: ONDANSETRON HYDROCHLORIDE
  38. PARACODIN [Concomitant]
  39. TAZOBACTAM [Concomitant]
     Active Substance: TAZOBACTAM
  40. LOVENOX [Concomitant]
     Active Substance: ENOXAPARIN SODIUM
  41. FILGRASTIM [Concomitant]
     Active Substance: FILGRASTIM
  42. AUGMENTIN [Concomitant]
     Active Substance: AMOXICILLIN\CLAVULANATE POTASSIUM
  43. DEXAMETHASONE [Concomitant]
     Active Substance: DEXAMETHASONE
  44. XICLAV (AUSTRIA) [Concomitant]
  45. OLIVE OIL [Concomitant]
     Active Substance: OLIVE OIL
  46. DIPRODERM (AUSTRIA) [Concomitant]
  47. ACTIMARIS [Concomitant]
  48. KALIORAL [Concomitant]
  49. EMEND [Concomitant]
     Active Substance: APREPITANT
  50. BETAISODONA [Concomitant]
     Active Substance: POVIDONE-IODINE
  51. NERIFORTE [Concomitant]
  52. LEUKICHTAN (AUSTRIA) [Concomitant]
  53. LEVOFLOXACIN [Concomitant]
     Active Substance: LEVOFLOXACIN
  54. ACETAMINOPHEN [Concomitant]
     Active Substance: ACETAMINOPHEN
  55. FENTANYL [Concomitant]
     Active Substance: FENTANYL\FENTANYL CITRATE
  56. ZOFRAN [Concomitant]
     Active Substance: ONDANSETRON HYDROCHLORIDE
  57. PASPERTIN [Concomitant]
  58. SILICON [Concomitant]
     Active Substance: SILICON
  59. AMOXICILLIN\CLAVULANATE POTASSIUM [Concomitant]
     Active Substance: AMOXICILLIN\CLAVULANATE POTASSIUM
  60. HYDROMORPHONE HYDROCHLORIDE [Concomitant]
     Active Substance: HYDROMORPHONE HYDROCHLORIDE
  61. CEFEPIME [Concomitant]
     Active Substance: CEFEPIME HYDROCHLORIDE
  62. ACETAMINOPHEN [Concomitant]
     Active Substance: ACETAMINOPHEN
  63. DEXAMETHASONE [Concomitant]
     Active Substance: DEXAMETHASONE
  64. LIDOCAINE [Concomitant]
     Active Substance: LIDOCAINE
  65. CARBOXYMETHYLCELLULOSE SODIUM [Concomitant]
     Active Substance: CARBOXYMETHYLCELLULOSE SODIUM
  66. FILGRASTIM [Concomitant]
     Active Substance: FILGRASTIM
  67. ONDANSETRON [Concomitant]
     Active Substance: ONDANSETRON
  68. AMPHOTERICIN B [Concomitant]
     Active Substance: AMPHOTERICIN B
  69. ALPRAZOLAM [Concomitant]
     Active Substance: ALPRAZOLAM
  70. TEMESTA [Concomitant]
  71. LACTULOSE [Concomitant]
     Active Substance: LACTULOSE
  72. VITAMIN C [Concomitant]
     Active Substance: ASCORBIC ACID
  73. HALSET [Concomitant]
  74. DROPERIDOL [Concomitant]
     Active Substance: DROPERIDOL
  75. SCOTTOPECT [Concomitant]
  76. MORPHINE [Concomitant]
     Active Substance: MORPHINE
  77. PONVERIDOL [Concomitant]
  78. LORAZEPAM [Concomitant]
     Active Substance: LORAZEPAM
  79. BUTYLSCOPOLAMINE BROMIDE [Concomitant]
     Active Substance: BUTYLSCOPOLAMINE BROMIDE
  80. DRONABINOL [Concomitant]
     Active Substance: DRONABINOL
  81. HYALURONATE SODIUM [Concomitant]
     Active Substance: HYALURONATE SODIUM

REACTIONS (5)
  - Pain in extremity [Recovered/Resolved]
  - Peripheral venous disease [Not Recovered/Not Resolved]
  - Rash [Recovered/Resolved]
  - Jugular vein thrombosis [Recovered/Resolved]
  - Lymphoedema [Recovered/Resolved]

NARRATIVE: CASE EVENT DATE: 20181218
